FAERS Safety Report 16059097 (Version 2)
Quarter: 2019Q3

REPORT INFORMATION
  Report Type: Spontaneous
  Country: IN (occurrence: IN)
  Receive Date: 20190311
  Receipt Date: 20190712
  Transmission Date: 20191004
  Serious: Yes (Other)
  Sender: FDA-Public Use
  Company Number: IN-PFIZER INC-2019101713

PATIENT
  Age: 61 Year
  Sex: Female
  Weight: 41 kg

DRUGS (2)
  1. PALBACE [Suspect]
     Active Substance: PALBOCICLIB
     Indication: BREAST CANCER METASTATIC
     Dosage: 100 MG, 1X/DAY
     Route: 048
     Dates: start: 20170923
  2. FULVESTRANT. [Suspect]
     Active Substance: FULVESTRANT
     Dosage: UNK

REACTIONS (17)
  - Pyrexia [Unknown]
  - Dyspnoea [Unknown]
  - Erythema [Unknown]
  - Haemoglobin decreased [Unknown]
  - Neutropenia [Unknown]
  - Pain [Unknown]
  - Purulent discharge [Unknown]
  - Asthenia [Unknown]
  - Renal cyst [Unknown]
  - Neoplasm progression [Unknown]
  - Neutrophil count decreased [Unknown]
  - Fall [Unknown]
  - Red blood cell count decreased [Unknown]
  - Uterine leiomyoma [Unknown]
  - Back pain [Unknown]
  - Tumour haemorrhage [Recovered/Resolved]
  - White blood cell count decreased [Unknown]

NARRATIVE: CASE EVENT DATE: 20190130
